FAERS Safety Report 5858238-2 (Version None)
Quarter: 2008Q3

REPORT INFORMATION
  Report Type: 
  Country: None (occurrence: None)
  Receive Date: 20080826
  Receipt Date: 20080818
  Transmission Date: 20090109
  Serious: Yes (Other)
  Sender: FDA-Public Use
  Company Number: A0738680A

PATIENT
  Age: 54 Year
  Sex: Female
  Weight: 126 kg

DRUGS (3)
  1. LAPATINIB [Suspect]
     Dosage: 750MG PER DAY
     Route: 048
     Dates: start: 20070529
  2. DOCETAXEL [Suspect]
     Dosage: 100MGM2 CYCLIC
     Route: 042
     Dates: start: 20070529
  3. TRASTUZUMAB [Suspect]
     Dosage: 6MGK CYCLIC
     Route: 042
     Dates: start: 20070529

REACTIONS (1)
  - NEUTROPENIA [None]
